FAERS Safety Report 5419888-0 (Version None)
Quarter: 2007Q3

REPORT INFORMATION
  Report Type: 
  Country: None (occurrence: None)
  Receive Date: 20070820
  Receipt Date: 20070809
  Transmission Date: 20080115
  Serious: Yes (Death, Life-Threatening, Hospitalization, Disabling, Other)
  Sender: FDA-Public Use
  Company Number: BR-BRISTOL-MYERS SQUIBB COMPANY-13841820

PATIENT
  Age: 80 Year
  Sex: Male
  Weight: 53 kg

DRUGS (5)
  1. IRBESARTAN [Suspect]
     Indication: HYPERTENSION
     Dates: start: 20031124, end: 20070721
  2. BLINDED: PLACEBO [Suspect]
     Indication: HYPERTENSION
     Dates: start: 20031124, end: 20070721
  3. CLOPIDOGREL BISULFATE [Suspect]
     Indication: PROPHYLAXIS
     Dates: start: 20031124, end: 20070721
  4. ASPIRIN [Suspect]
     Indication: PROPHYLAXIS
     Dates: start: 20031124, end: 20070721
  5. DIGOXIN [Concomitant]

REACTIONS (3)
  - GENERALISED OEDEMA [None]
  - RENAL FAILURE ACUTE [None]
  - SEPSIS [None]
